FAERS Safety Report 9298163 (Version 1)
Quarter: 2013Q2

REPORT INFORMATION
  Report Type: Spontaneous
  Country: BR (occurrence: BR)
  Receive Date: 20130520
  Receipt Date: 20130520
  Transmission Date: 20140414
  Serious: Yes (Other)
  Sender: FDA-Public Use
  Company Number: BR-AMGEN-BRASP2013034931

PATIENT
  Age: 52 Year
  Sex: Female
  Weight: 69 kg

DRUGS (4)
  1. ENBREL [Suspect]
     Indication: PSORIATIC ARTHROPATHY
     Dosage: 50 MG, ONCE WEEKLY
     Route: 058
     Dates: start: 201201, end: 201302
  2. METHOTREXATE [Concomitant]
     Dosage: 9 UNITS OF 2.5MG ONCE WEEKLY
  3. FOLIC ACID [Concomitant]
     Dosage: 1 UNIT OF UNSPECIFIED DOSE, FOUR TIMES WEEKLY
  4. VITAMIN D /00107901/ [Concomitant]
     Dosage: 35 GTT, ONCE WEEKLY

REACTIONS (6)
  - Hypersensitivity [Unknown]
  - Bronchiolitis [Unknown]
  - Sinusitis [Unknown]
  - Injection site oedema [Unknown]
  - Injection site pain [Unknown]
  - Injection site erythema [Unknown]
